FAERS Safety Report 13111997 (Version 1)
Quarter: 2017Q1

REPORT INFORMATION
  Report Type: Report from Study
  Country: AT (occurrence: AT)
  Receive Date: 20170113
  Receipt Date: 20170113
  Transmission Date: 20170428
  Serious: Yes (Other)
  Sender: FDA-Public Use
  Company Number: AT-ROCHE-1878592

PATIENT
  Sex: Female

DRUGS (2)
  1. CAPECITABINE. [Suspect]
     Active Substance: CAPECITABINE
     Indication: BREAST CANCER METASTATIC
     Dosage: ON DAY 1 AND DAY 14 OF A 3-WEEK CYCLE
     Route: 065
  2. BENDAMUSTINE [Suspect]
     Active Substance: BENDAMUSTINE
     Indication: BREAST CANCER METASTATIC
     Dosage: ON DAY 1 AND DAY 8 OF A 3-WEEK CYCLE
     Route: 065

REACTIONS (9)
  - Polyneuropathy [Unknown]
  - Palmar-plantar erythrodysaesthesia syndrome [Unknown]
  - Syncope [Unknown]
  - Fatigue [Unknown]
  - Constipation [Unknown]
  - Erysipelas [Unknown]
  - Nausea [Unknown]
  - Vomiting [Unknown]
  - Stomatitis [Unknown]
